FAERS Safety Report 7337637-6 (Version None)
Quarter: 2011Q1

REPORT INFORMATION
  Report Type: 
  Country: None (occurrence: None)
  Receive Date: 20110308
  Receipt Date: 20110222
  Transmission Date: 20110831
  Serious: Yes (Hospitalization, Other)
  Sender: FDA-Public Use
  Company Number: US-BAYER-201042147NA

PATIENT
  Sex: Female
  Weight: 65.76 kg

DRUGS (22)
  1. YAZ [Suspect]
     Indication: UTERINE ENLARGEMENT
  2. POTASSIUM [Concomitant]
  3. ZOFRAN [Concomitant]
  4. BACLOFEN [Concomitant]
  5. OXYCODONE HCL [Concomitant]
  6. VANCOMYCIN [Concomitant]
  7. URSODIOL [Concomitant]
  8. KEPPRA [Concomitant]
  9. NYSTATIN [Concomitant]
  10. CELEXA [Concomitant]
  11. CELEBREX [Concomitant]
  12. YAZ [Suspect]
     Indication: VAGINAL HAEMORRHAGE
     Dosage: UNK UNK, UNK
     Route: 048
     Dates: start: 20071109, end: 20081224
  13. YAZ [Suspect]
  14. PROTONIX [Concomitant]
  15. PERCOCET [Concomitant]
  16. TRAZODONE [Concomitant]
  17. NEXIUM [Concomitant]
  18. LIDOCAINE [Concomitant]
  19. COLACE [Concomitant]
  20. YAZ [Suspect]
     Indication: ABDOMINAL DISTENSION
  21. ZOSYN [Concomitant]
  22. LISINOPRIL [Concomitant]

REACTIONS (9)
  - ATELECTASIS [None]
  - ENTEROCOCCAL SEPSIS [None]
  - PULMONARY EMBOLISM [None]
  - CHOLELITHIASIS [None]
  - SUBDURAL HAEMATOMA [None]
  - CHOLECYSTITIS [None]
  - CEREBRAL INFARCTION [None]
  - HAEMORRHAGE INTRACRANIAL [None]
  - DEEP VEIN THROMBOSIS [None]
